FAERS Safety Report 9300516 (Version 2)
Quarter: 2013Q3

REPORT INFORMATION
  Report Type: Spontaneous
  Country: JP (occurrence: JP)
  Receive Date: 20130521
  Receipt Date: 20130704
  Transmission Date: 20140515
  Serious: Yes (Death, Life-Threatening)
  Sender: FDA-Public Use
  Company Number: JP-BRISTOL-MYERS SQUIBB COMPANY-18896555

PATIENT
  Age: 72 Year
  Sex: Male
  Weight: 59.1 kg

DRUGS (7)
  1. ELIQUIS [Suspect]
     Indication: CEREBROVASCULAR ACCIDENT PROPHYLAXIS
     Dosage: ELIQUIS 5 MG TABS
     Route: 048
     Dates: start: 20130416, end: 20130430
  2. INSULIN [Concomitant]
     Indication: DIABETES MELLITUS
     Dosage: INJ LONG ACTING AND VERY RAPID ACTING INSULIN
  3. VASOLAN [Concomitant]
     Dosage: TABS
     Route: 048
     Dates: start: 20130410, end: 20130430
  4. NICORANDIL [Concomitant]
     Dosage: TABS
     Route: 048
     Dates: start: 20130416, end: 20130430
  5. DIOVAN [Concomitant]
     Dosage: TABS
     Route: 048
     Dates: start: 20130418, end: 20130430
  6. CRESTOR [Concomitant]
     Dosage: TABS
     Route: 048
     Dates: start: 20130422, end: 20130430
  7. CALBLOCK [Concomitant]
     Dosage: TABS
     Route: 048
     Dates: start: 20130429, end: 20130430

REACTIONS (4)
  - Postresuscitation encephalopathy [Fatal]
  - Altered state of consciousness [Not Recovered/Not Resolved]
  - Cardio-respiratory arrest [Recovering/Resolving]
  - Dehydration [Not Recovered/Not Resolved]
